FAERS Safety Report 8522171-8 (Version None)
Quarter: 2012Q3

REPORT INFORMATION
  Report Type: 
  Country: None (occurrence: None)
  Receive Date: 20120719
  Receipt Date: 20120709
  Transmission Date: 20120928
  Serious: Yes (Other)
  Sender: FDA-Public Use
  Company Number: JP-VERTEX PHARMACEUTICALS INC.-AE-2012-010236

PATIENT
  Age: 56 Year
  Sex: Male

DRUGS (8)
  1. RIBAVIRIN [Concomitant]
     Indication: HEPATITIS C
     Route: 048
     Dates: start: 20120423, end: 20120527
  2. TELAVIC (TELAPREVIR) [Suspect]
     Indication: HEPATITIS C
     Route: 048
     Dates: start: 20120423, end: 20120601
  3. RIBAVIRIN [Concomitant]
     Route: 048
     Dates: start: 20120528, end: 20120601
  4. PEGINTERFERON ALFA-2B [Concomitant]
     Indication: HEPATITIS C
     Route: 058
     Dates: start: 20120423, end: 20120429
  5. PEGINTERFERON ALFA-2B [Concomitant]
     Route: 058
     Dates: start: 20120430
  6. ANTEBATE: OINTMENT [Concomitant]
     Route: 061
     Dates: start: 20120426
  7. FLAVITAN [Concomitant]
     Route: 048
     Dates: start: 20120521, end: 20120527
  8. URSO 250 [Concomitant]
     Route: 048

REACTIONS (1)
  - RASH [None]
